FAERS Safety Report 5384235-X (Version None)
Quarter: 2007Q3

REPORT INFORMATION
  Report Type: 
  Country: None (occurrence: None)
  Receive Date: 20070711
  Receipt Date: 20070704
  Transmission Date: 20080115
  Serious: Yes (Life-Threatening, Other)
  Sender: FDA-Public Use
  Company Number: HQWYE913905JUL07

PATIENT
  Sex: Female
  Weight: 39 kg

DRUGS (14)
  1. MYLOTARG [Suspect]
     Indication: ACUTE MYELOID LEUKAEMIA RECURRENT
     Route: 041
     Dates: start: 20070425, end: 20070425
  2. MYLOTARG [Suspect]
     Route: 041
     Dates: start: 20070510, end: 20070510
  3. VANCOMYCIN [Concomitant]
     Route: 041
     Dates: start: 20070515, end: 20070518
  4. VANCOMYCIN [Concomitant]
     Route: 048
     Dates: start: 20070520, end: 20070530
  5. ZYVOX [Concomitant]
     Route: 041
     Dates: start: 20070518
  6. VFEND [Concomitant]
     Route: 041
     Dates: start: 20070525
  7. BAKTAR [Concomitant]
     Dosage: UNKNOWN
     Route: 048
     Dates: start: 20070301
  8. DALACIN-S [Concomitant]
     Route: 042
     Dates: start: 20070527
  9. ITRACONAZOLE [Concomitant]
     Dosage: UNKNOWN
     Route: 042
  10. ITRACONAZOLE [Concomitant]
     Route: 048
     Dates: start: 20070420, end: 20070525
  11. LEVOFLOXACIN [Concomitant]
     Route: 048
     Dates: start: 20070420, end: 20070514
  12. FLAGYL [Concomitant]
     Route: 048
     Dates: start: 20070516, end: 20070520
  13. MAXIPIME [Concomitant]
     Route: 041
     Dates: start: 20070507, end: 20070514
  14. PAZUCROSS [Concomitant]
     Route: 041
     Dates: start: 20070527

REACTIONS (5)
  - DISSEMINATED INTRAVASCULAR COAGULATION [None]
  - FEBRILE NEUTROPENIA [None]
  - PLATELET COUNT DECREASED [None]
  - PLEURAL EFFUSION [None]
  - WEIGHT INCREASED [None]
